FAERS Safety Report 4795758-6 (Version None)
Quarter: 2005Q3

REPORT INFORMATION
  Report Type: 
  Country: None (occurrence: None)
  Receive Date: 20050916
  Receipt Date: 20040802
  Transmission Date: 20060218
  Serious: Yes (Hospitalization)
  Sender: FDA-Public Use
  Company Number: US-JNJFOC-20040800620

PATIENT
  Age: 28 Year
  Sex: Female
  Weight: 82.5547 kg

DRUGS (5)
  1. TOPAMAX [Suspect]
     Indication: CYST
     Dates: start: 20031101
  2. ORTHO-NOVUM 1/35 [Suspect]
     Indication: ENDOMETRIOSIS
     Dosage: 1 IN 1 DAY, ORAL
     Route: 048
     Dates: start: 20031101, end: 20040501
  3. LUPRON DEPOT [Suspect]
     Indication: ENDOMETRIOSIS
     Dosage: 11.25 MG, 1 IN, INTRA-MUSCULAR; SEE IMAGE
     Route: 030
     Dates: start: 19970101, end: 20030801
  4. LUPRON DEPOT [Suspect]
     Indication: ENDOMETRIOSIS
     Dosage: 11.25 MG, 1 IN, INTRA-MUSCULAR; SEE IMAGE
     Route: 030
     Dates: start: 20030819, end: 20030819
  5. PREMPRO 14/14 [Concomitant]

REACTIONS (2)
  - DEPRESSION [None]
  - PULMONARY EMBOLISM [None]
